FAERS Safety Report 18159941 (Version 1)
Quarter: 2020Q3

REPORT INFORMATION
  Report Type: Spontaneous
  Country: DE (occurrence: DE)
  Receive Date: 20200817
  Receipt Date: 20200817
  Transmission Date: 20201103
  Serious: Yes (Life-Threatening, Hospitalization)
  Sender: FDA-Public Use
  Company Number: DE-ANIPHARMA-2020-DE-000174

PATIENT
  Age: 68 Year
  Sex: Male

DRUGS (21)
  1. SPASMOLYT [Concomitant]
     Active Substance: TROSPIUM CHLORIDE
     Dosage: TWO TIMES A DAY
     Route: 048
  2. LEVETIRACETAM. [Concomitant]
     Active Substance: LEVETIRACETAM
     Dosage: 500 MG BID / DOSE: 1000 MG BID
     Route: 048
  3. ROPINIROLE HYDROCHLORIDE. [Concomitant]
     Active Substance: ROPINIROLE HYDROCHLORIDE
     Dosage: .5 MG BID
     Route: 048
  4. BRILIQUE [Concomitant]
     Active Substance: TICAGRELOR
     Dosage: 90 MG BID
     Route: 048
  5. PANTOPRAZOL [Concomitant]
     Active Substance: PANTOPRAZOLE SODIUM
     Dosage: 40 MG QD
     Route: 065
  6. NITRENDIPINE [Suspect]
     Active Substance: NITRENDIPINE
     Dosage: 20 MG BID
     Route: 048
  7. BISOHEXAL PLUS [Suspect]
     Active Substance: BISOPROLOL FUMARATE\HYDROCHLOROTHIAZIDE
     Dosage: 5/12.5 MG, DAILY
     Route: 048
  8. LEVOTHYROXINE. [Concomitant]
     Active Substance: LEVOTHYROXINE
     Dosage: 50 UG QD
     Route: 048
  9. FUROSEMIDE. [Concomitant]
     Active Substance: FUROSEMIDE
     Dosage: 40 MG UNK
     Route: 048
  10. CANDESARTAN. [Suspect]
     Active Substance: CANDESARTAN
     Indication: PRODUCT USED FOR UNKNOWN INDICATION
     Dosage: 16 MG BID
     Route: 048
  11. TECHNETIUM (99M TC SESTAMIBI) [Suspect]
     Active Substance: TECHNETIUM TC-99M SESTAMIBI
     Dosage: DOSE TEXT: UNKNOWN DOSE AND FREQUENCY
     Route: 065
  12. TAMSULOSIN [Concomitant]
     Active Substance: TAMSULOSIN
     Dosage: .4 MG QD
     Route: 048
  13. RANEXA [Concomitant]
     Active Substance: RANOLAZINE
     Dosage: 375 MG BID
     Route: 048
  14. PENTALONG [Concomitant]
     Active Substance: PENTAERYTHRITOL TETRANITRATE
     Dosage: 50 MG BID
     Route: 048
  15. PREGABALIN. [Concomitant]
     Active Substance: PREGABALIN
     Dosage: 75 MG BID
     Route: 048
  16. OXCARBAZEPINE. [Concomitant]
     Active Substance: OXCARBAZEPINE
     Dosage: 900 MG BID
     Route: 048
  17. EBRANTIL [Suspect]
     Active Substance: URAPIDIL
     Dosage: 90 MG BID
     Route: 048
  18. ACETYLSALICYLSAEURE [Concomitant]
     Active Substance: ASPIRIN
     Dosage: 100 MG QD
     Route: 048
  19. ROSUVASTATIN. [Concomitant]
     Active Substance: ROSUVASTATIN
     Dosage: 40 MG QD
     Route: 048
  20. EZETROL [Concomitant]
     Active Substance: EZETIMIBE
     Dosage: 10 MG QD
     Route: 048
  21. GLAUPAX [Concomitant]
     Active Substance: ACETAZOLAMIDE
     Dosage: 1000 MG QD
     Route: 048

REACTIONS (5)
  - Vomiting [Unknown]
  - General physical health deterioration [Unknown]
  - Nausea [Unknown]
  - Hypotension [Unknown]
  - Dizziness [Unknown]

NARRATIVE: CASE EVENT DATE: 202006
